FAERS Safety Report 21160345 (Version 2)
Quarter: 2022Q4

REPORT INFORMATION
  Report Type: Spontaneous
  Country: US (occurrence: US)
  Receive Date: 20220802
  Receipt Date: 20221013
  Transmission Date: 20230112
  Serious: No
  Sender: FDA-Public Use
  Company Number: US-BRISTOL-MYERS SQUIBB COMPANY-2022-076859

PATIENT
  Age: 10 Year
  Sex: Male

DRUGS (2)
  1. THALOMID [Suspect]
     Active Substance: THALIDOMIDE
     Indication: Testis cancer
     Route: 048
     Dates: start: 202207
  2. THALOMID [Suspect]
     Active Substance: THALIDOMIDE
     Dosage: FREQ: DAILY
     Route: 048

REACTIONS (1)
  - Intentional product use issue [Unknown]
